FAERS Safety Report 6815090-6 (Version None)
Quarter: 2010Q3

REPORT INFORMATION
  Report Type: 
  Country: None (occurrence: None)
  Receive Date: 20100702
  Receipt Date: 20100625
  Transmission Date: 20110219
  Serious: Yes (Hospitalization)
  Sender: FDA-Public Use
  Company Number: US-WATSON-2010-08516

PATIENT
  Sex: Male

DRUGS (3)
  1. GELNIQUE (WATSON LABORATORIES) [Suspect]
     Indication: POLLAKIURIA
     Dosage: 1 PACKET, DAILY
     Route: 061
     Dates: start: 20100401, end: 20100611
  2. FLOMAX [Suspect]
     Indication: POLLAKIURIA
     Dosage: UNK
     Route: 048
  3. BLOOD PRESSURE MEDICATIONS (UNSPECIFIED) [Concomitant]
     Indication: HYPERTENSION
     Dosage: UNK
     Route: 048

REACTIONS (7)
  - BLOOD PRESSURE INCREASED [None]
  - COUGH [None]
  - DYSPNOEA [None]
  - FLUID RETENTION [None]
  - HEART RATE IRREGULAR [None]
  - OEDEMA PERIPHERAL [None]
  - PULMONARY OEDEMA [None]
